FAERS Safety Report 23580360 (Version 2)
Quarter: 2024Q1

REPORT INFORMATION
  Report Type: Spontaneous
  Country: US (occurrence: US)
  Receive Date: 20240229
  Receipt Date: 20240308
  Transmission Date: 20240409
  Serious: Yes (Other)
  Sender: FDA-Public Use
  Company Number: US-ALCON LABORATORIES-ALC2024US001267

PATIENT
  Age: 73 Year
  Sex: Female

DRUGS (6)
  1. ALCAINE [Suspect]
     Active Substance: PROPARACAINE HYDROCHLORIDE
     Indication: Cataract operation
     Dosage: 1 GTT X 2, 5 MINUTES APART
     Route: 047
  2. BETADINE [Suspect]
     Active Substance: POVIDONE-IODINE
     Indication: Cataract operation
     Dosage: 2 GTT, 5 MINUTES APART
     Route: 047
  3. LIDOCAINE [Suspect]
     Active Substance: LIDOCAINE
     Indication: Cataract operation
     Dosage: UNK
     Route: 065
  4. MYDRIACYL [Suspect]
     Active Substance: TROPICAMIDE
     Indication: Cataract operation
     Dosage: 1 GTT X 2, 5 MINUTES APART
     Route: 047
  5. ALPHAGAN P [Concomitant]
     Active Substance: BRIMONIDINE TARTRATE
     Indication: Postoperative care
     Dosage: 1 GTT
     Route: 065
  6. TIMOLOL [Concomitant]
     Active Substance: TIMOLOL
     Indication: Postoperative care
     Dosage: 1 GTT
     Route: 065

REACTIONS (3)
  - Anterior chamber cell [Recovered/Resolved]
  - Anterior chamber fibrin [Recovered/Resolved]
  - Blepharitis [Recovered/Resolved]

NARRATIVE: CASE EVENT DATE: 20240202
